FAERS Safety Report 9530716 (Version 1)
Quarter: 2013Q2

REPORT INFORMATION
  Report Type: Spontaneous
  Country: US (occurrence: None)
  Receive Date: 20130418
  Receipt Date: 20130418
  Transmission Date: 20140414
  Serious: Yes (Hospitalization)
  Sender: FDA-Public Use
  Company Number: 1301USA000943

PATIENT
  Age: 38 Year
  Sex: Female

DRUGS (4)
  1. MONTELUKAST SODIUM [Suspect]
     Route: 048
  2. MEDROL [Suspect]
     Route: 048
  3. PARIET (RABEPRAZOLE SODIUM) [Concomitant]
  4. ZITHROMAX (AZITHROMYCIN) [Concomitant]

REACTIONS (1)
  - Angioedema [None]
